FAERS Safety Report 5710037-8 (Version None)
Quarter: 2008Q2

REPORT INFORMATION
  Report Type: 
  Country: None (occurrence: None)
  Receive Date: 20080418
  Receipt Date: 20070921
  Transmission Date: 20081010
  Serious: No
  Sender: FDA-Public Use
  Company Number: US-ASTRAZENECA-2007UW22393

PATIENT
  Age: 42 Year
  Sex: Male

DRUGS (4)
  1. METOPROLOL SUCCINATE [Suspect]
     Route: 048
  2. FAMVIR [Concomitant]
  3. ZOLPIDEM [Concomitant]
  4. CRESTOR [Concomitant]

REACTIONS (3)
  - DISCOMFORT [None]
  - MALAISE [None]
  - PALPITATIONS [None]
